FAERS Safety Report 13981716 (Version 1)
Quarter: 2017Q3

REPORT INFORMATION
  Report Type: Spontaneous
  Country: US (occurrence: US)
  Receive Date: 20170918
  Receipt Date: 20170918
  Transmission Date: 20171128
  Serious: No
  Sender: FDA-Public Use
  Company Number: US-BION-006262

PATIENT
  Sex: Female

DRUGS (1)
  1. ZYRTEC [Suspect]
     Active Substance: CETIRIZINE HYDROCHLORIDE
     Indication: HYPERSENSITIVITY
     Dosage: ONCE DAILY BEFORE BED
     Route: 048

REACTIONS (3)
  - Circumstance or information capable of leading to medication error [Unknown]
  - Somnolence [Unknown]
  - Fatigue [Unknown]
